FAERS Safety Report 14686229 (Version 1)
Quarter: 2018Q1

REPORT INFORMATION
  Report Type: Spontaneous
  Country: US (occurrence: US)
  Receive Date: 20180326
  Receipt Date: 20180326
  Transmission Date: 20180509
  Serious: No
  Sender: FDA-Public Use
  Company Number: None

PATIENT
  Age: 66 Year
  Sex: Female
  Weight: 108 kg

DRUGS (14)
  1. ATORVASTATIN CALCIUM. [Suspect]
     Active Substance: ATORVASTATIN CALCIUM
     Indication: BLOOD CHOLESTEROL INCREASED
     Dosage: ?          QUANTITY:1 TABLET(S);?
     Route: 048
     Dates: start: 20170420, end: 20170426
  2. GABAPENTIN. [Concomitant]
     Active Substance: GABAPENTIN
  3. VITAMIN B12 [Concomitant]
     Active Substance: CYANOCOBALAMIN
  4. HYDRALAZINE [Concomitant]
     Active Substance: HYDRALAZINE HYDROCHLORIDE
  5. LISINOPRIL. [Concomitant]
     Active Substance: LISINOPRIL
  6. WARFARIN SODIUM. [Concomitant]
     Active Substance: WARFARIN SODIUM
  7. CPAP MACHINE [Concomitant]
  8. ACETAMINOPHEM [Concomitant]
  9. CARBAMAZEPINE. [Concomitant]
     Active Substance: CARBAMAZEPINE
  10. CLONIDINE. [Concomitant]
     Active Substance: CLONIDINE
  11. TORSEMIDE. [Concomitant]
     Active Substance: TORSEMIDE
  12. CEPHALEXIN. [Concomitant]
     Active Substance: CEPHALEXIN
  13. DILTIAZEM. [Concomitant]
     Active Substance: DILTIAZEM
  14. ASPIRIN. [Concomitant]
     Active Substance: ASPIRIN

REACTIONS (6)
  - Asthenia [None]
  - Lethargy [None]
  - Dementia [None]
  - Condition aggravated [None]
  - Hallucination [None]
  - Delusion [None]

NARRATIVE: CASE EVENT DATE: 20170426
